FAERS Safety Report 5534049-2 (Version None)
Quarter: 2007Q4

REPORT INFORMATION
  Report Type: 
  Country: None (occurrence: None)
  Receive Date: 20071129
  Receipt Date: 20071129
  Transmission Date: 20080405
  Serious: Yes (Other)
  Sender: FDA-Public Use
  Company Number: None

PATIENT
  Sex: Female
  Weight: 62.5964 kg

DRUGS (1)
  1. GRIS-PEG [Suspect]
     Indication: FUNGAL INFECTION
     Dosage: 500 MG 2/DAY PO
     Route: 048
     Dates: start: 20071031, end: 20071111

REACTIONS (2)
  - OVERDOSE [None]
  - VAGINAL HAEMORRHAGE [None]
